FAERS Safety Report 7457521-7 (Version None)
Quarter: 2011Q2

REPORT INFORMATION
  Report Type: 
  Country: None (occurrence: None)
  Receive Date: 20110504
  Receipt Date: 20110426
  Transmission Date: 20111010
  Serious: Yes (Hospitalization, Other)
  Sender: FDA-Public Use
  Company Number: FR-BRISTOL-MYERS SQUIBB COMPANY-15704539

PATIENT
  Age: 84 Year
  Sex: Female

DRUGS (8)
  1. SERESTA [Suspect]
     Indication: DEPRESSION
  2. CORDARONE [Concomitant]
     Indication: ATRIAL FIBRILLATION
     Dosage: 1 DF:1TAB ON 5 TIMES A WK
  3. TAHOR [Concomitant]
     Indication: DYSLIPIDAEMIA
  4. CYMBALTA [Interacting]
     Indication: DEPRESSION
     Dosage: IN THE EVENING
     Route: 048
     Dates: start: 20110330, end: 20110331
  5. DAFALGAN [Concomitant]
  6. COUMADIN [Interacting]
     Indication: PULMONARY EMBOLISM
     Dosage: 1DF:2MG/D ON EVEN DAYS AND 3 MG/D ON ODD DAYS
     Route: 048
     Dates: start: 20100801, end: 20110331
  7. NITRODERM [Concomitant]
  8. BURINEX [Concomitant]
     Indication: CARDIAC DISORDER
     Dosage: IN THE MORNING

REACTIONS (4)
  - DEPRESSION [None]
  - DRUG INTERACTION [None]
  - INTERNATIONAL NORMALISED RATIO INCREASED [None]
  - SUICIDE ATTEMPT [None]
